FAERS Safety Report 4448717-7 (Version None)
Quarter: 2004Q3

REPORT INFORMATION
  Report Type: 
  Country: None (occurrence: None)
  Receive Date: 20040909
  Receipt Date: 20040825
  Transmission Date: 20050211
  Serious: Yes (Other)
  Sender: FDA-Public Use
  Company Number: 2004-DE-0456701 (0)

PATIENT
  Age: 31 Year
  Sex: Female

DRUGS (1)
  1. PRADIF (TAMSULOSIN)(KAR)(TAMSULOSIN HYDROCHLORIDE) [Suspect]
     Indication: BLADDER DISORDER
     Dosage: 400 MCG (400 MCG, 1 IN 1 D)
     Route: 048
     Dates: start: 20040504, end: 20040602

REACTIONS (3)
  - ABORTION INDUCED [None]
  - DRUG EXPOSURE DURING PREGNANCY [None]
  - HAEMORRHAGE [None]
